FAERS Safety Report 6013479-9 (Version None)
Quarter: 2008Q4

REPORT INFORMATION
  Report Type: 
  Country: None (occurrence: None)
  Receive Date: 20081216
  Receipt Date: 20071126
  Transmission Date: 20090506
  Serious: Yes (Other)
  Sender: FDA-Public Use
  Company Number: US-WYE-H01466707

PATIENT
  Sex: Female

DRUGS (4)
  1. EFFEXOR XR [Suspect]
     Indication: HOT FLUSH
     Dosage: 75 MG, FREQUENCY NOT SPECIFIED, ORAL ; 37.5 MG, FREQUENCY NOT SPECIFIED, ORAL
     Route: 048
     Dates: start: 20071001, end: 20070101
  2. EFFEXOR XR [Suspect]
     Indication: STRESS
     Dosage: 75 MG, FREQUENCY NOT SPECIFIED, ORAL ; 37.5 MG, FREQUENCY NOT SPECIFIED, ORAL
     Route: 048
     Dates: start: 20071001, end: 20070101
  3. EFFEXOR XR [Suspect]
     Indication: HOT FLUSH
     Dosage: 75 MG, FREQUENCY NOT SPECIFIED, ORAL ; 37.5 MG, FREQUENCY NOT SPECIFIED, ORAL
     Route: 048
     Dates: start: 20070101
  4. EFFEXOR XR [Suspect]
     Indication: STRESS
     Dosage: 75 MG, FREQUENCY NOT SPECIFIED, ORAL ; 37.5 MG, FREQUENCY NOT SPECIFIED, ORAL
     Route: 048
     Dates: start: 20070101

REACTIONS (2)
  - FATIGUE [None]
  - FEELING ABNORMAL [None]
